FAERS Safety Report 5959707-7 (Version None)
Quarter: 2008Q4

REPORT INFORMATION
  Report Type: 
  Country: None (occurrence: None)
  Receive Date: 20081119
  Receipt Date: 20081119
  Transmission Date: 20090506
  Serious: Yes (Life-Threatening)
  Sender: FDA-Public Use
  Company Number: None

PATIENT
  Sex: Female
  Weight: 85 kg

DRUGS (16)
  1. METHOTREXATE [Suspect]
     Indication: GRAFT VERSUS HOST DISEASE
     Dosage: 16 MG IV ON 5/16, 5/18, 5/21
     Dates: start: 20080516
  2. METHOTREXATE [Suspect]
     Indication: GRAFT VERSUS HOST DISEASE
     Dosage: 16 MG IV ON 5/16, 5/18, 5/21
     Dates: start: 20080518
  3. METHOTREXATE [Suspect]
     Indication: GRAFT VERSUS HOST DISEASE
     Dosage: 16 MG IV ON 5/16, 5/18, 5/21
     Dates: start: 20080521
  4. DULOXETINE [Concomitant]
  5. AMLODIPINE [Concomitant]
  6. INSULIN [Concomitant]
  7. LABETALOL HCL [Concomitant]
  8. LANSOPROZOLE [Concomitant]
  9. MEDROXYPROGESTERONE [Concomitant]
  10. M.V.I. [Concomitant]
  11. MICROYESTIN [Concomitant]
  12. MGOX [Concomitant]
  13. FLUCONAZOLE [Concomitant]
  14. ACYCLOVIR [Concomitant]
  15. NYSTATIN [Concomitant]
  16. TBI [Suspect]

REACTIONS (1)
  - MUCOSAL INFLAMMATION [None]
